FAERS Safety Report 4399730-X (Version None)
Quarter: 2004Q2

REPORT INFORMATION
  Report Type: 
  Country: None (occurrence: None)
  Receive Date: 20040608
  Receipt Date: 20040218
  Transmission Date: 20050107
  Serious: No
  Sender: FDA-Public Use
  Company Number: FROV000169

PATIENT
  Sex: Male

DRUGS (1)
  1. FROVA [Suspect]
     Indication: CLUSTER HEADACHE
     Dosage: UNK; ORAL
     Route: 048

REACTIONS (1)
  - UNEVALUABLE EVENT [None]
